FAERS Safety Report 4922044-3 (Version None)
Quarter: 2006Q1

REPORT INFORMATION
  Report Type: 
  Country: None (occurrence: None)
  Receive Date: 20060222
  Receipt Date: 20060222
  Transmission Date: 20060701
  Serious: Yes (Hospitalization)
  Sender: FDA-Public Use
  Company Number: None

PATIENT
  Age: 78 Year
  Sex: Female
  Weight: 93.5 kg

DRUGS (7)
  1. ZESTRIL [Suspect]
     Indication: HYPERTENSION
     Dosage: 10 MG PO DAILY
     Route: 048
  2. NIFEDIPINE [Concomitant]
  3. LISINOPRIL [Concomitant]
  4. ASPIRIN [Concomitant]
  5. HYDROCHLORATHIAZIDE [Concomitant]
  6. CALCIUM SUPPLEMENT [Concomitant]
  7. MULTI-VITAMIN [Concomitant]

REACTIONS (5)
  - ANGIONEUROTIC OEDEMA [None]
  - AORTIC ANEURYSM [None]
  - SWELLING FACE [None]
  - SWOLLEN TONGUE [None]
  - THROAT IRRITATION [None]
